FAERS Safety Report 11073842 (Version 1)
Quarter: 2015Q2

REPORT INFORMATION
  Report Type: Spontaneous
  Country: IE (occurrence: IE)
  Receive Date: 20150428
  Receipt Date: 20150428
  Transmission Date: 20150821
  Serious: Yes (Hospitalization)
  Sender: FDA-Public Use
  Company Number: IE-009507513-1504IRL020776

PATIENT
  Age: 33 Year
  Sex: Female

DRUGS (4)
  1. LANSOPRAZOLE. [Concomitant]
     Active Substance: LANSOPRAZOLE
  2. SINGULAIR [Suspect]
     Active Substance: MONTELUKAST SODIUM
     Dosage: 10 MG, ONCE DAILY
     Route: 048
     Dates: start: 20150118, end: 20150418
  3. SODIUM CHLORIDE. [Concomitant]
     Active Substance: SODIUM CHLORIDE
     Dosage: UNK
  4. ACETAMINOPHEN. [Concomitant]
     Active Substance: ACETAMINOPHEN

REACTIONS (5)
  - Epistaxis [Unknown]
  - Gastric haemorrhage [Unknown]
  - Haemorrhagic diathesis [Unknown]
  - Laceration [Unknown]
  - Contusion [Unknown]

NARRATIVE: CASE EVENT DATE: 201501
